FAERS Safety Report 6170508-X (Version None)
Quarter: 2009Q2

REPORT INFORMATION
  Report Type: 
  Country: None (occurrence: None)
  Receive Date: 20090428
  Receipt Date: 20090422
  Transmission Date: 20091009
  Serious: Yes (Death)
  Sender: FDA-Public Use
  Company Number: IL-CELGENEUS-082-C5013-09041892

PATIENT
  Sex: Male

DRUGS (2)
  1. CC-5013 [Suspect]
     Route: 048
     Dates: start: 20090101
  2. CC-5013 [Suspect]
     Route: 048
     Dates: start: 20090401

REACTIONS (1)
  - SEPSIS [None]
